FAERS Safety Report 20559887 (Version 1)
Quarter: 2022Q1

REPORT INFORMATION
  Report Type: Report from Study
  Country: US (occurrence: US)
  Receive Date: 20220307
  Receipt Date: 20220307
  Transmission Date: 20220423
  Serious: Yes (Hospitalization, Other)
  Sender: FDA-Public Use
  Company Number: US-NOVARTISPH-NVSC2022US048527

PATIENT
  Sex: Male

DRUGS (2)
  1. ENTRESTO [Suspect]
     Active Substance: SACUBITRIL\VALSARTAN
     Indication: Product used for unknown indication
     Dosage: 200 MG (97/103 MG: 97.2 MG SACUBITRIL AND 102.8 MG VALSARTAN), BID
     Route: 048
     Dates: start: 202110
  2. ENTRESTO [Suspect]
     Active Substance: SACUBITRIL\VALSARTAN
     Dosage: 100 MG, (49/51 MG: SACUBITRIL 48.6MG, VALSARTAN 51.4MG), BID
     Route: 048

REACTIONS (2)
  - Blood pressure decreased [Unknown]
  - Atrial fibrillation [Unknown]
